FAERS Safety Report 7670970-7 (Version None)
Quarter: 2011Q3

REPORT INFORMATION
  Report Type: 
  Country: None (occurrence: None)
  Receive Date: 20110809
  Receipt Date: 20110805
  Transmission Date: 20111222
  Serious: Yes (Hospitalization, Other)
  Sender: FDA-Public Use
  Company Number: US-PFIZER INC-2011118732

PATIENT
  Sex: Male

DRUGS (1)
  1. CHANTIX [Suspect]
     Indication: SMOKING CESSATION THERAPY
     Dosage: 1MG, UNK
     Dates: start: 20080501, end: 20100701

REACTIONS (9)
  - PSYCHOTIC DISORDER [None]
  - DEPRESSION [None]
  - IMPAIRED DRIVING ABILITY [None]
  - MENTAL DISORDER [None]
  - ANXIETY [None]
  - CONVULSION [None]
  - EMOTIONAL DISTRESS [None]
  - AGGRESSION [None]
  - ABNORMAL BEHAVIOUR [None]
